FAERS Safety Report 7725584-7 (Version None)
Quarter: 2011Q3

REPORT INFORMATION
  Report Type: 
  Country: None (occurrence: None)
  Receive Date: 20110830
  Receipt Date: 20110823
  Transmission Date: 20111222
  Serious: Yes (Hospitalization)
  Sender: FDA-Public Use
  Company Number: 2011080049

PATIENT
  Age: 84 Year
  Sex: Male

DRUGS (1)
  1. TORSEMIDE [Suspect]
     Dosage: ORAL
     Route: 048
     Dates: start: 20090101

REACTIONS (1)
  - PEMPHIGUS [None]
